FAERS Safety Report 11272034 (Version 1)
Quarter: 2015Q3

REPORT INFORMATION
  Report Type: Spontaneous
  Country: US (occurrence: None)
  Receive Date: 20150713
  Receipt Date: 20150713
  Transmission Date: 20151125
  Serious: Yes (Disabling)
  Sender: FDA-Public Use
  Company Number: None

PATIENT
  Age: 25 Year
  Sex: Male
  Weight: 113.4 kg

DRUGS (5)
  1. MELATONIN 3MG + L-THEANINE 200MG [Concomitant]
  2. CIPROFLOXACIN HCL [Suspect]
     Active Substance: CIPROFLOXACIN HYDROCHLORIDE
     Indication: BACTERIAL INFECTION
     Dosage: 1 TWICE DAILY
     Route: 048
     Dates: start: 20150623, end: 20150625
  3. SERTRALINE [Concomitant]
     Active Substance: SERTRALINE HYDROCHLORIDE
  4. CIPROFLOXACIN HCL [Suspect]
     Active Substance: CIPROFLOXACIN HYDROCHLORIDE
     Indication: EPIDIDYMITIS
     Dosage: 1 TWICE DAILY
     Route: 048
     Dates: start: 20150623, end: 20150625
  5. PREDNISONE. [Concomitant]
     Active Substance: PREDNISONE

REACTIONS (21)
  - Hypoaesthesia [None]
  - Ageusia [None]
  - Photophobia [None]
  - Depression [None]
  - Paraesthesia [None]
  - Irritability [None]
  - Dyspnoea [None]
  - Hyperhidrosis [None]
  - Deafness neurosensory [None]
  - Flushing [None]
  - Headache [None]
  - Tinnitus [None]
  - Chest discomfort [None]
  - Hypopnoea [None]
  - Agitation [None]
  - Confusional state [None]
  - Feeling hot [None]
  - Chills [None]
  - Deafness unilateral [None]
  - Suicidal ideation [None]
  - Anxiety [None]

NARRATIVE: CASE EVENT DATE: 20150624
